FAERS Safety Report 9975876 (Version 2)
Quarter: 2014Q1

REPORT INFORMATION
  Report Type: Spontaneous
  Country: US (occurrence: US)
  Receive Date: 20140306
  Receipt Date: 20140328
  Transmission Date: 20141002
  Serious: No
  Sender: FDA-Public Use
  Company Number: US-PFIZER INC-2014060174

PATIENT
  Sex: Male

DRUGS (2)
  1. FLAGYL [Suspect]
     Dosage: 750 MG, 1X/DAY
  2. FLAGYL [Suspect]
     Dosage: UNK
     Dates: end: 20140223

REACTIONS (2)
  - Inappropriate schedule of drug administration [Unknown]
  - Diarrhoea [Unknown]
